FAERS Safety Report 5799394-4 (Version None)
Quarter: 2008Q3

REPORT INFORMATION
  Report Type: 
  Country: None (occurrence: None)
  Receive Date: 20080703
  Receipt Date: 20080624
  Transmission Date: 20090109
  Serious: Yes (Other)
  Sender: FDA-Public Use
  Company Number: US-PFIZER INC-2008054100

PATIENT
  Sex: Female

DRUGS (1)
  1. SUTENT [Suspect]
     Indication: RENAL CELL CARCINOMA
     Dosage: DAILY DOSE:37.5MG

REACTIONS (7)
  - FATIGUE [None]
  - HYPOTHYROIDISM [None]
  - INTESTINAL PERFORATION [None]
  - NAUSEA [None]
  - NEUTROPENIA [None]
  - PNEUMATOSIS INTESTINALIS [None]
  - STOMATITIS [None]
